FAERS Safety Report 18927634 (Version 2)
Quarter: 2021Q1

REPORT INFORMATION
  Report Type: Spontaneous
  Country: SI (occurrence: SI)
  Receive Date: 20210223
  Receipt Date: 20210327
  Transmission Date: 20210420
  Serious: Yes (Other)
  Sender: FDA-Public Use
  Company Number: SI-DRREDDYS-USA/SLO/21/0132302

PATIENT
  Age: 58 Year
  Sex: Male

DRUGS (1)
  1. AZACITIDINE. [Suspect]
     Active Substance: AZACITIDINE
     Indication: CHRONIC MYELOMONOCYTIC LEUKAEMIA
     Dosage: 75 MG/M2 DAILY FOR 7 DAYS PER MONTH FOR CMML. AFTER 2 CYCLES, THE AZACITIDINE DOSE WAS REDUCED TO A

REACTIONS (5)
  - Respiratory tract infection [Unknown]
  - Myocardial ischaemia [Unknown]
  - Acute myeloid leukaemia [Unknown]
  - Neutropenia [Unknown]
  - Disease progression [Unknown]
